FAERS Safety Report 4858001-5 (Version None)
Quarter: 2005Q4

REPORT INFORMATION
  Report Type: 
  Country: None (occurrence: None)
  Receive Date: 20051219
  Receipt Date: 20050428
  Transmission Date: 20060501
  Serious: No
  Sender: FDA-Public Use
  Company Number: US-GLAXOSMITHKLINE-A0556127A

PATIENT
  Age: 39 Year
  Sex: Male

DRUGS (1)
  1. NICODERM CQ [Suspect]
     Dates: start: 20050427

REACTIONS (6)
  - ABNORMAL DREAMS [None]
  - APPLICATION SITE ERYTHEMA [None]
  - APPLICATION SITE PRURITUS [None]
  - HEADACHE [None]
  - HYPOAESTHESIA [None]
  - PRODUCTIVE COUGH [None]
